FAERS Safety Report 5159305-1 (Version None)
Quarter: 2006Q4

REPORT INFORMATION
  Report Type: 
  Country: None (occurrence: None)
  Receive Date: 20061120
  Receipt Date: 20061109
  Transmission Date: 20070319
  Serious: Yes (Other)
  Sender: FDA-Public Use
  Company Number: GXKR2006BR07342

PATIENT
  Age: 47 Year
  Sex: Female
  Weight: 48 kg

DRUGS (2)
  1. FLUOXETINE [Suspect]
     Indication: PREMENSTRUAL SYNDROME
     Dosage: 20 MG, QD, ORAL
     Route: 048
  2. ACETYLSALICYLIC ACID (ACETYLSALICYLIC ACID) TABLET [Concomitant]

REACTIONS (7)
  - ANXIETY [None]
  - COLD SWEAT [None]
  - CONVULSION [None]
  - FACIAL PALSY [None]
  - PANIC ATTACK [None]
  - TACHYCARDIA [None]
  - TREMOR [None]
